FAERS Safety Report 10307622 (Version 4)
Quarter: 2014Q3

REPORT INFORMATION
  Report Type: Spontaneous
  Country: CL (occurrence: CL)
  Receive Date: 20140716
  Receipt Date: 20140811
  Transmission Date: 20150326
  Serious: Yes (Other)
  Sender: FDA-Public Use
  Company Number: CL-NOVOPROD-412379

PATIENT
  Age: 78 Year
  Sex: Male
  Weight: 114 kg

DRUGS (8)
  1. LANTUS [Concomitant]
     Active Substance: INSULIN GLARGINE
     Dosage: UNK
     Route: 058
  2. CARDIOASPIRIN [Concomitant]
     Active Substance: ASPIRIN
     Dosage: 100 MG
     Route: 048
  3. ESTAPROL [Concomitant]
     Dosage: 100 MG, QD
     Route: 048
  4. GLUCOPHAGE [Concomitant]
     Active Substance: METFORMIN HYDROCHLORIDE
     Dosage: 1000 MG, BID
     Route: 048
  5. TAREG-D [Concomitant]
     Dosage: 320/25MG/ DAY
     Route: 048
  6. BETAPLEX                           /00984501/ [Concomitant]
     Dosage: 12.5 MG, QD
     Route: 048
  7. ATORVASTATIN [Concomitant]
     Active Substance: ATORVASTATIN
     Dosage: 10 MG, QD
     Route: 048
  8. VICTOZA [Suspect]
     Active Substance: LIRAGLUTIDE
     Indication: TYPE 2 DIABETES MELLITUS
     Dosage: 1.2 MG, QD
     Route: 058
     Dates: start: 20140509, end: 20140528

REACTIONS (5)
  - Diarrhoea [Recovering/Resolving]
  - Skin exfoliation [Recovering/Resolving]
  - Rash pruritic [Recovering/Resolving]
  - Renal impairment [Recovering/Resolving]
  - Asthenia [Recovering/Resolving]

NARRATIVE: CASE EVENT DATE: 20140528
